FAERS Safety Report 8921318 (Version 1)
Quarter: 2012Q4

REPORT INFORMATION
  Report Type: 
  Country: FR (occurrence: FR)
  Receive Date: 20121121
  Receipt Date: 20121121
  Transmission Date: 20130627
  Serious: Yes (Hospitalization)
  Sender: FDA-Public Use
  Company Number: FR-ROCHE-798120

PATIENT
  Sex: Male

DRUGS (12)
  1. CYMEVAN [Suspect]
     Indication: CYTOMEGALOVIRUS COLITIS
     Route: 042
     Dates: start: 20110321, end: 20110401
  2. BACTRIM [Suspect]
     Indication: PNEUMOCYSTIS JIROVECI INFECTION
     Route: 042
     Dates: start: 20110328, end: 20110409
  3. CEFTRIAXONE [Suspect]
     Indication: PRODUCT USED FOR UNKNOWN INDICATION
     Route: 042
     Dates: start: 20110325, end: 20110329
  4. VANCOMYCINE [Suspect]
     Indication: BLOOD CULTURE POSITIVE
     Dosage: FREQUENCY: ONCE.
     Route: 042
     Dates: start: 20110325, end: 20110325
  5. GENTAMICINE [Suspect]
     Indication: PRODUCT USED FOR UNKNOWN INDICATION
     Route: 042
     Dates: start: 20110325, end: 20110327
  6. METRONIDAZOLE [Suspect]
     Indication: PRODUCT USED FOR UNKNOWN INDICATION
     Route: 042
     Dates: start: 20110326, end: 20110330
  7. ROVAMYCINE [Suspect]
     Indication: PNEUMOCYSTIS JIROVECI INFECTION
     Route: 042
     Dates: start: 20110328, end: 20110329
  8. TAZOCILLINE [Suspect]
     Indication: PNEUMOCYSTIS JIROVECI INFECTION
     Route: 042
     Dates: start: 20110330, end: 20110407
  9. FLUCONAZOLE [Suspect]
     Indication: ORAL FUNGAL INFECTION
     Route: 048
     Dates: start: 20110323, end: 20110328
  10. FLUINDIONE [Concomitant]
     Route: 065
  11. HEMIGOXINE NATIVELLE [Concomitant]
     Dosage: REPORTED AS HEMIGOXINE
     Route: 065
  12. BISOPROLOL [Concomitant]
     Route: 065

REACTIONS (1)
  - Bone marrow disorder [Recovered/Resolved]
